FAERS Safety Report 17353200 (Version 3)
Quarter: 2020Q1

REPORT INFORMATION
  Report Type: Report from Study
  Country: RO (occurrence: RO)
  Receive Date: 20200131
  Receipt Date: 20200306
  Transmission Date: 20200409
  Serious: Yes (Hospitalization, Other)
  Sender: FDA-Public Use
  Company Number: RO-EMD SERONO-9142905

PATIENT
  Age: 42 Year
  Sex: Female

DRUGS (1)
  1. REBIF [Suspect]
     Active Substance: INTERFERON BETA-1A
     Indication: RELAPSING-REMITTING MULTIPLE SCLEROSIS
     Route: 058
     Dates: start: 20160726

REACTIONS (12)
  - Cholangitis [Unknown]
  - Gamma-glutamyltransferase increased [Recovered/Resolved]
  - Blood cholinesterase increased [Unknown]
  - Protein total increased [Unknown]
  - Cystitis [Unknown]
  - Influenza like illness [Unknown]
  - Toxoplasmosis [Not Recovered/Not Resolved]
  - Jaundice [Recovered/Resolved]
  - Alanine aminotransferase increased [Recovering/Resolving]
  - Red cell distribution width increased [Unknown]
  - Pancreatitis [Recovered/Resolved]
  - Aspartate aminotransferase increased [Unknown]

NARRATIVE: CASE EVENT DATE: 201910
